FAERS Safety Report 10437085 (Version 2)
Quarter: 2014Q3

REPORT INFORMATION
  Report Type: Spontaneous
  Country: CN (occurrence: CN)
  Receive Date: 20140908
  Receipt Date: 20140919
  Transmission Date: 20150326
  Serious: Yes (Hospitalization)
  Sender: FDA-Public Use
  Company Number: CN-PFIZER INC-2014248817

PATIENT
  Age: 84 Year
  Sex: Male
  Weight: 65 kg

DRUGS (3)
  1. MORPHINE SULFATE. [Suspect]
     Active Substance: MORPHINE SULFATE
     Indication: POSTOPERATIVE CARE
  2. MORPHINE SULFATE. [Suspect]
     Active Substance: MORPHINE SULFATE
     Indication: BREAKTHROUGH PAIN
     Dosage: UNK
     Route: 048
  3. OXYCONTIN [Suspect]
     Active Substance: OXYCODONE HYDROCHLORIDE
     Indication: POSTOPERATIVE CARE
     Dosage: 10 MG, 2X/DAY
     Route: 048
     Dates: start: 20130430, end: 20130521

REACTIONS (3)
  - Somnolence [Recovering/Resolving]
  - Dysaesthesia [Recovering/Resolving]
  - Respiratory depression [Recovering/Resolving]

NARRATIVE: CASE EVENT DATE: 20130521
